FAERS Safety Report 6099883-1 (Version None)
Quarter: 2009Q1

REPORT INFORMATION
  Report Type: 
  Country: None (occurrence: None)
  Receive Date: 20090303
  Receipt Date: 20090219
  Transmission Date: 20090719
  Serious: Yes (Death)
  Sender: FDA-Public Use
  Company Number: GB-TEVA-185916ISR

PATIENT

DRUGS (2)
  1. VENLAFAXINE HCL [Suspect]
  2. DIGOXIN [Suspect]

REACTIONS (2)
  - ARRHYTHMIA [None]
  - SYNCOPE [None]
